FAERS Safety Report 16661020 (Version 1)
Quarter: 2019Q3

REPORT INFORMATION
  Report Type: Spontaneous
  Country: US (occurrence: US)
  Receive Date: 20190802
  Receipt Date: 20190802
  Transmission Date: 20191004
  Serious: Yes (Other)
  Sender: FDA-Public Use
  Company Number: US-009507513-1907USA015158

PATIENT
  Age: 53 Year
  Sex: Male
  Weight: 104.31 kg

DRUGS (34)
  1. PROSCAR [Suspect]
     Active Substance: FINASTERIDE
     Indication: OEDEMA
     Dosage: 5 MG, 1X/DAY
     Route: 048
     Dates: start: 200808
  2. PROVENTIL [Suspect]
     Active Substance: ALBUTEROL
     Indication: RESPIRATORY TRACT INFECTION VIRAL
     Dosage: 4 MG, 3X/DAY
     Route: 048
     Dates: start: 200703
  3. ACTOS [Suspect]
     Active Substance: PIOGLITAZONE HYDROCHLORIDE
     Indication: DIABETES MELLITUS
     Dosage: REGIMEN 2:15MG ORAL 1/1DAY(JAN09TO2009) 15MG 2/1DAY(APR09TO09 15MG 3/1DAY(2009)
     Route: 048
     Dates: start: 20090108
  4. COLCHICINE. [Suspect]
     Active Substance: COLCHICINE
     Indication: ALANINE AMINOTRANSFERASE INCREASED
     Dosage: 0.6 MG, UNK
     Route: 048
     Dates: start: 200203
  5. PENTOXIFYLLINE. [Suspect]
     Active Substance: PENTOXIFYLLINE
     Indication: OEDEMA
     Dosage: 400 MG, 2X/DAY
     Route: 048
     Dates: start: 200205
  6. OMEPRAZOLE. [Suspect]
     Active Substance: OMEPRAZOLE
     Indication: ALANINE AMINOTRANSFERASE INCREASED
     Dosage: 40 MILLIGRAM, QD
     Route: 048
     Dates: start: 200407
  7. ACTOS [Suspect]
     Active Substance: PIOGLITAZONE HYDROCHLORIDE
     Dosage: 15 MG, 2X/DAY
     Route: 048
     Dates: start: 200904, end: 2009
  8. METFORMIN HYDROCHLORIDE. [Suspect]
     Active Substance: METFORMIN HYDROCHLORIDE
     Indication: DIABETES MELLITUS
     Dosage: UNK
     Route: 048
     Dates: end: 2009
  9. METFORMIN [Concomitant]
     Active Substance: METFORMIN HYDROCHLORIDE
     Indication: DIABETES MELLITUS
     Dosage: 2000 MG, UNK
     Route: 048
     Dates: start: 2009, end: 2009
  10. GLIPIZIDE. [Suspect]
     Active Substance: GLIPIZIDE
     Indication: OEDEMA
  11. OXYCODONE [Suspect]
     Active Substance: OXYCODONE
     Indication: PRODUCT USED FOR UNKNOWN INDICATION
     Dosage: 5 MG, UNK
     Dates: start: 201002
  12. PENTOXIFYLLINE. [Suspect]
     Active Substance: PENTOXIFYLLINE
     Indication: INFLUENZA
     Dosage: UNK
  13. ZANTAC [Suspect]
     Active Substance: RANITIDINE HYDROCHLORIDE
     Indication: LIVER DISORDER
     Dosage: UNK
  14. ACTOS [Suspect]
     Active Substance: PIOGLITAZONE HYDROCHLORIDE
     Indication: DIABETES MELLITUS
     Dosage: 7.5 MG, 1X/DAY
     Route: 048
     Dates: start: 20090108, end: 200901
  15. ACTOS [Suspect]
     Active Substance: PIOGLITAZONE HYDROCHLORIDE
     Dosage: 15 MG, 3X/DAY
     Route: 048
     Dates: start: 20090108
  16. LASIX [Concomitant]
     Active Substance: FUROSEMIDE
     Indication: FLUID RETENTION
     Dosage: 20 MG, 1X/DAY
     Route: 048
     Dates: start: 2009, end: 2009
  17. GLUCOPHAGE XR [Concomitant]
     Active Substance: METFORMIN HYDROCHLORIDE
     Indication: DIABETES MELLITUS
     Dosage: 500 MG
     Route: 065
     Dates: end: 2009
  18. ZOCOR [Suspect]
     Active Substance: SIMVASTATIN
     Indication: BLOOD CHOLESTEROL INCREASED
     Dosage: 40 MG, 1X/DAY
     Route: 048
  19. GLIPIZIDE. [Suspect]
     Active Substance: GLIPIZIDE
     Indication: DIABETES MELLITUS
     Dosage: 10 MG, 2X/DAY
     Route: 048
  20. ATROVENT HFA [Suspect]
     Active Substance: IPRATROPIUM BROMIDE
     Indication: PRODUCT USED FOR UNKNOWN INDICATION
     Dosage: SPRAY
     Dates: start: 200312, end: 200611
  21. ALLOPURINOL. [Suspect]
     Active Substance: ALLOPURINOL
     Indication: HEPATIC ENZYME INCREASED
     Dosage: 300MG 0.5-1 TIMES DAILY
     Route: 048
     Dates: start: 200402
  22. PENTOXIFYLLINE. [Suspect]
     Active Substance: PENTOXIFYLLINE
     Indication: HEPATIC ENZYME INCREASED
  23. ZANTAC [Suspect]
     Active Substance: RANITIDINE HYDROCHLORIDE
     Indication: MYALGIA
     Dosage: 300 MG, 3X/DAY
     Route: 048
     Dates: start: 200309
  24. GLUCOPHAGE [Suspect]
     Active Substance: METFORMIN HYDROCHLORIDE
     Indication: PRODUCT USED FOR UNKNOWN INDICATION
     Dosage: 1 TABLET (DOSERPEORTED AS 4 (UNITS NOT REPORTED)
     Route: 048
     Dates: start: 200902
  25. ACTOS [Suspect]
     Active Substance: PIOGLITAZONE HYDROCHLORIDE
     Dosage: 15 MG, 1X/DAY
     Route: 048
     Dates: start: 200901, end: 2009
  26. GLUCOPHAGE [Suspect]
     Active Substance: METFORMIN HYDROCHLORIDE
     Dosage: 1DF=1TAB
     Route: 048
     Dates: start: 200902
  27. NASAREL [Suspect]
     Active Substance: FLUNISOLIDE
     Indication: OEDEMA PERIPHERAL
     Dosage: UNK
     Dates: start: 200312, end: 200611
  28. ZOCOR [Suspect]
     Active Substance: SIMVASTATIN
     Indication: ALANINE AMINOTRANSFERASE INCREASED
     Dosage: 40 MILLIGRAM, QD
  29. LORATADINE. [Suspect]
     Active Substance: LORATADINE
     Indication: PRODUCT USED FOR UNKNOWN INDICATION
     Dosage: 10 MG, 1X/DAY
     Route: 048
     Dates: start: 200811
  30. COLCHICINE. [Suspect]
     Active Substance: COLCHICINE
     Dosage: 0.6 MILLIGRAM
     Route: 048
     Dates: start: 200202
  31. PROVENTIL [Suspect]
     Active Substance: ALBUTEROL
     Indication: RHINITIS
     Dosage: UNK
  32. PROVENTIL [Suspect]
     Active Substance: ALBUTEROL
     Indication: COUGH
  33. GLIPIZIDE. [Suspect]
     Active Substance: GLIPIZIDE
     Indication: MUSCLE SPASMS
  34. OMEPRAZOLE. [Suspect]
     Active Substance: OMEPRAZOLE
     Indication: OEDEMA PERIPHERAL
     Dosage: 20 MG, 2X/DAY
     Route: 048
     Dates: start: 200407

REACTIONS (8)
  - Oedema peripheral [Recovered/Resolved]
  - Nasopharyngitis [Recovered/Resolved]
  - Alanine aminotransferase increased [Unknown]
  - Drug ineffective [Recovered/Resolved]
  - Oedema peripheral [Recovered/Resolved]
  - Muscle spasms [Recovered/Resolved]
  - Gingival disorder [Not Recovered/Not Resolved]
  - Blood glucose increased [Unknown]

NARRATIVE: CASE EVENT DATE: 2008
